FAERS Safety Report 9479779 (Version 2)
Quarter: 2013Q3

REPORT INFORMATION
  Report Type: Spontaneous
  Country: CA (occurrence: CA)
  Receive Date: 20130828
  Receipt Date: 20130828
  Transmission Date: 20140515
  Serious: Yes (Hospitalization)
  Sender: FDA-Public Use
  Company Number: CA-AMGEN-KDL039669

PATIENT
  Age: 64 Year
  Sex: Female

DRUGS (1)
  1. ENBREL [Suspect]
     Indication: RHEUMATOID ARTHRITIS
     Dosage: 25 MG, 2 TIMES/WK
     Route: 058
     Dates: start: 20020401

REACTIONS (7)
  - Hip arthroplasty [Unknown]
  - Femur fracture [Recovered/Resolved]
  - Fall [Unknown]
  - Post procedural complication [Unknown]
  - Medical device implantation [Unknown]
  - Medical device complication [Unknown]
  - Wheelchair user [Unknown]
